FAERS Safety Report 15573517 (Version 1)
Quarter: 2018Q4

REPORT INFORMATION
  Report Type: Spontaneous
  Country: CA (occurrence: CA)
  Receive Date: 20181101
  Receipt Date: 20181101
  Transmission Date: 20190205
  Serious: Yes (Other)
  Sender: FDA-Public Use
  Company Number: CA-ORION CORPORATION ORION PHARMA-TREX2018-3132

PATIENT
  Age: 52 Year
  Sex: Female

DRUGS (8)
  1. METHOTREXATE (TRADE NAME UNKNOWN) [Suspect]
     Active Substance: METHOTREXATE
     Route: 058
  2. METHOTREXATE (TRADE NAME UNKNOWN) [Suspect]
     Active Substance: METHOTREXATE
     Indication: RHEUMATOID ARTHRITIS
     Route: 048
  3. HEPATITIS A VACCINE INTACT W/HEPATITIS B VACCINE RHBSAG YEAST [Concomitant]
     Route: 065
  4. PLAQUENIL [Suspect]
     Active Substance: HYDROXYCHLOROQUINE SULFATE
     Indication: PRODUCT USED FOR UNKNOWN INDICATION
     Route: 065
  5. HEPATITIS B SURFACE ANTIGEN [Concomitant]
     Active Substance: HEPATITIS B VIRUS HBSAG SURFACE PROTEIN ANTIGEN
     Route: 065
  6. ENBREL [Suspect]
     Active Substance: ETANERCEPT
     Indication: RHEUMATOID ARTHRITIS
     Route: 065
  7. SULFASALAZINE. [Suspect]
     Active Substance: SULFASALAZINE
     Indication: RHEUMATOID ARTHRITIS
     Route: 065
  8. HUMIRA [Suspect]
     Active Substance: ADALIMUMAB
     Indication: PRODUCT USED FOR UNKNOWN INDICATION
     Route: 058

REACTIONS (10)
  - Arthropathy [Recovered/Resolved]
  - Mobility decreased [Recovered/Resolved]
  - Musculoskeletal disorder [Recovered/Resolved]
  - Eye disorder [Recovered/Resolved]
  - Localised infection [Recovered/Resolved]
  - Back pain [Recovered/Resolved]
  - Impaired healing [Recovered/Resolved]
  - Peripheral swelling [Recovered/Resolved]
  - Drug effect incomplete [Recovered/Resolved]
  - Drug intolerance [Recovered/Resolved]
